FAERS Safety Report 19948938 (Version 1)
Quarter: 2021Q4

REPORT INFORMATION
  Report Type: Spontaneous
  Country: US (occurrence: US)
  Receive Date: 20211012
  Receipt Date: 20211012
  Transmission Date: 20220303
  Serious: Yes (Other)
  Sender: FDA-Public Use
  Company Number: None

PATIENT
  Age: 58 Year
  Sex: Male
  Weight: 81.45 kg

DRUGS (14)
  1. REGEN-COV [Suspect]
     Active Substance: CASIRIVIMAB\IMDEVIMAB
     Indication: COVID-19
     Dosage: ?          QUANTITY:4 INJECTION(S);
     Route: 058
     Dates: start: 20211005, end: 20211005
  2. DEVICE\INSULIN NOS [Concomitant]
     Active Substance: DEVICE\INSULIN NOS
  3. DEVICE [Concomitant]
     Active Substance: DEVICE
  4. LISINOPRIL [Concomitant]
     Active Substance: LISINOPRIL
  5. SYNTHROID [Concomitant]
     Active Substance: LEVOTHYROXINE SODIUM
  6. PROTONIX [Concomitant]
     Active Substance: PANTOPRAZOLE SODIUM
  7. ROSUVASTATIN [Concomitant]
     Active Substance: ROSUVASTATIN
  8. HUMALOG [Concomitant]
     Active Substance: INSULIN LISPRO
  9. VITAMIN D [Concomitant]
     Active Substance: VITAMIN D NOS
  10. VITAMIN C [Concomitant]
     Active Substance: ASCORBIC ACID
  11. ZINC [Concomitant]
     Active Substance: ZINC
  12. QUERCETIN [Concomitant]
     Active Substance: QUERCETIN
  13. COENZYME Q10 [Concomitant]
     Active Substance: DIETARY SUPPLEMENT\UBIDECARENONE
  14. XYZAL [Concomitant]
     Active Substance: LEVOCETIRIZINE DIHYDROCHLORIDE

REACTIONS (2)
  - Injection site erythema [None]
  - Injection site rash [None]

NARRATIVE: CASE EVENT DATE: 20211009
